FAERS Safety Report 24300748 (Version 1)
Quarter: 2024Q3

REPORT INFORMATION
  Report Type: Spontaneous
  Country: CN (occurrence: None)
  Receive Date: 20240910
  Receipt Date: 20240910
  Transmission Date: 20241016
  Serious: Yes (Other)
  Sender: ASTRAZENECA
  Company Number: 2024A201514

PATIENT
  Age: 18968 Day
  Sex: Female
  Weight: 56 kg

DRUGS (2)
  1. OSIMERTINIB MESYLATE [Suspect]
     Active Substance: OSIMERTINIB MESYLATE
     Indication: Chemotherapy
     Route: 048
     Dates: start: 20240308
  2. OSIMERTINIB MESYLATE [Suspect]
     Active Substance: OSIMERTINIB MESYLATE
     Indication: Symptomatic treatment
     Route: 048
     Dates: start: 20240308

REACTIONS (4)
  - Blood creatine phosphokinase increased [Recovering/Resolving]
  - Asthenia [Unknown]
  - Rash pruritic [Unknown]
  - Scab [Unknown]

NARRATIVE: CASE EVENT DATE: 20240816
